FAERS Safety Report 13366665 (Version 1)
Quarter: 2017Q1

REPORT INFORMATION
  Report Type: Report from Study
  Country: US (occurrence: US)
  Receive Date: 20170324
  Receipt Date: 20170324
  Transmission Date: 20170429
  Serious: No
  Sender: FDA-Public Use
  Company Number: US-AMGEN-USASL2017043006

PATIENT
  Age: 91 Year
  Sex: Female

DRUGS (2)
  1. ENBREL [Suspect]
     Active Substance: ETANERCEPT
     Indication: PSORIASIS
     Dosage: 50 MG, 2 TIMES/WK
     Route: 065
     Dates: start: 201702
  2. ENBREL [Suspect]
     Active Substance: ETANERCEPT
     Indication: PSORIASIS

REACTIONS (5)
  - Therapeutic response decreased [Unknown]
  - Asthenia [Unknown]
  - Walking aid user [Unknown]
  - Fatigue [Unknown]
  - Mobility decreased [Unknown]

NARRATIVE: CASE EVENT DATE: 2017
